FAERS Safety Report 4323766-8 (Version None)
Quarter: 2004Q1

REPORT INFORMATION
  Report Type: 
  Country: None (occurrence: None)
  Receive Date: 20040323
  Receipt Date: 20040310
  Transmission Date: 20041129
  Serious: Yes (Hospitalization)
  Sender: FDA-Public Use
  Company Number: 2004016825

PATIENT
  Age: 58 Year
  Sex: Female

DRUGS (4)
  1. NORVASC [Suspect]
     Indication: ILL-DEFINED DISORDER
     Dosage: 5 MG, ORAL
     Route: 048
     Dates: start: 20011001, end: 20040306
  2. LIPITOR [Suspect]
     Indication: ILL-DEFINED DISORDER
     Dosage: 10 MG, ORAL
     Route: 048
     Dates: start: 20010601, end: 20040306
  3. SAIREI-TO (HERBAL EXTRACTS) [Concomitant]
  4. DICKININ (CAFFEINE, RIBOFLAVIN, PARACETAMOL, CHLORPHENAMINE MALEATE, T [Concomitant]

REACTIONS (3)
  - GENERAL PHYSICAL CONDITION ABNORMAL [None]
  - LIVER DISORDER [None]
  - NASOPHARYNGITIS [None]
